FAERS Safety Report 8533434-4 (Version None)
Quarter: 2012Q2

REPORT INFORMATION
  Report Type: 
  Country: None (occurrence: None)
  Receive Date: 20120412
  Receipt Date: 20120215
  Transmission Date: 20120825
  Serious: Yes (Other)
  Sender: FDA-Public Use
  Company Number: 2012S1000010

PATIENT
  Age: 45 Year
  Sex: Male
  Weight: 84.369 kg

DRUGS (17)
  1. AMLODIPINE [Concomitant]
  2. LISINOPRIL [Concomitant]
  3. LIPITOR [Concomitant]
  4. BENADRYL [Concomitant]
  5. GLYBURIDE [Concomitant]
  6. CLONIDINE [Concomitant]
  7. SOLU-MEDROL [Concomitant]
  8. KRYSTEXXA [Suspect]
     Indication: GOUT
     Dosage: 8 MG;IV
     Route: 042
     Dates: start: 20120104, end: 20120104
  9. KRYSTEXXA [Suspect]
     Indication: RENAL IMPAIRMENT
     Dosage: 8 MG;IV
     Route: 042
     Dates: start: 20120104, end: 20120104
  10. KRYSTEXXA [Suspect]
     Indication: GOUT
     Dosage: 8 MG;IV
     Route: 042
     Dates: start: 20120210, end: 20120210
  11. KRYSTEXXA [Suspect]
     Indication: RENAL IMPAIRMENT
     Dosage: 8 MG;IV
     Route: 042
     Dates: start: 20120210, end: 20120210
  12. KRYSTEXXA [Suspect]
     Indication: GOUT
     Dosage: 8 MG;IV
     Route: 042
     Dates: start: 20120127, end: 20120127
  13. KRYSTEXXA [Suspect]
     Indication: RENAL IMPAIRMENT
     Dosage: 8 MG;IV
     Route: 042
     Dates: start: 20120127, end: 20120127
  14. PREDNISONE [Concomitant]
  15. ATENOLOL [Concomitant]
  16. TYLENOL [Concomitant]
  17. ALLOPURINOL [Concomitant]

REACTIONS (1)
  - ANAPHYLACTIC SHOCK [None]
